FAERS Safety Report 7803100-9 (Version None)
Quarter: 2011Q4

REPORT INFORMATION
  Report Type: 
  Country: None (occurrence: None)
  Receive Date: 20111007
  Receipt Date: 20110928
  Transmission Date: 20120403
  Serious: Yes (Other)
  Sender: FDA-Public Use
  Company Number: CA-JNJFOC-20111001191

PATIENT
  Sex: Female
  Weight: 82 kg

DRUGS (4)
  1. COLCHICINE [Concomitant]
  2. PREDNISONE [Concomitant]
  3. REMICADE [Suspect]
     Indication: CROHN'S DISEASE
     Route: 042
     Dates: start: 20070101
  4. ALLOPURINOL [Concomitant]

REACTIONS (1)
  - GOUT [None]
